FAERS Safety Report 10898395 (Version 1)
Quarter: 2015Q1

REPORT INFORMATION
  Report Type: Report from Study
  Country: US (occurrence: US)
  Receive Date: 20150309
  Receipt Date: 20150309
  Transmission Date: 20150721
  Serious: No
  Sender: FDA-Public Use
  Company Number: US-ABBVIE-14P-163-1224260-00

PATIENT
  Sex: Female

DRUGS (1)
  1. LUPRON DEPOT [Suspect]
     Active Substance: LEUPROLIDE ACETATE
     Indication: PRODUCT USED FOR UNKNOWN INDICATION
     Dates: start: 201309

REACTIONS (1)
  - Night sweats [Unknown]

NARRATIVE: CASE EVENT DATE: 2013
